FAERS Safety Report 13403502 (Version 1)
Quarter: 2017Q2

REPORT INFORMATION
  Report Type: Report from Study
  Country: BR (occurrence: BR)
  Receive Date: 20170404
  Receipt Date: 20170404
  Transmission Date: 20170830
  Serious: Yes (Life-Threatening, Other)
  Sender: FDA-Public Use
  Company Number: PHHY2017BR050163

PATIENT
  Sex: Female

DRUGS (1)
  1. TRILEPTAL [Suspect]
     Active Substance: OXCARBAZEPINE
     Indication: ONCOLOGIC COMPLICATION
     Route: 065

REACTIONS (8)
  - Eating disorder [Unknown]
  - Product use in unapproved indication [Unknown]
  - Blindness [Unknown]
  - Feeling abnormal [Unknown]
  - Irritability [Unknown]
  - Tumour pain [Unknown]
  - Headache [Unknown]
  - Nervousness [Unknown]
